FAERS Safety Report 8447382-1 (Version None)
Quarter: 2012Q2

REPORT INFORMATION
  Report Type: 
  Country: None (occurrence: None)
  Receive Date: 20120619
  Receipt Date: 20120615
  Transmission Date: 20120825
  Serious: Yes (Other)
  Sender: FDA-Public Use
  Company Number: PHHY2012PT051317

PATIENT
  Sex: Male

DRUGS (9)
  1. ZOLPIDEM [Concomitant]
     Route: 048
  2. LOSARTAN POTASSIUM [Concomitant]
     Route: 048
  3. HUMAN INSULIN [Concomitant]
     Route: 058
  4. LASIX [Concomitant]
     Route: 048
  5. PRAVASTATIN SODIUM [Concomitant]
     Route: 048
  6. TRIPTORELIN [Concomitant]
     Route: 030
  7. ZOMETA [Suspect]
     Indication: METASTASES TO BONE
     Dosage: 4 MG / 100 ML (NACL 0.9%) FOR 15 MINUTES
     Route: 042
     Dates: start: 20120208, end: 20120208
  8. ALFACALCIDOL [Concomitant]
     Route: 048
  9. OMEPRAZOLE [Concomitant]
     Dosage: 20 MG, UNK
     Route: 048

REACTIONS (3)
  - MYOCLONUS [None]
  - HYPOCALCAEMIA [None]
  - TETANY [None]
